FAERS Safety Report 4523833-X (Version None)
Quarter: 2004Q4

REPORT INFORMATION
  Report Type: 
  Country: None (occurrence: None)
  Receive Date: 20041101
  Receipt Date: 20040730
  Transmission Date: 20050328
  Serious: Yes (Hospitalization, Other)
  Sender: FDA-Public Use
  Company Number: US085829

PATIENT
  Age: 77 Year
  Sex: Female

DRUGS (12)
  1. PROCRIT [Suspect]
     Indication: RENAL FAILURE CHRONIC
     Dosage: 10000 IU, 2 IN 1 WEEKS, SC
     Route: 058
     Dates: start: 20030101, end: 20040701
  2. TOLTERODINE TARTRATE [Concomitant]
  3. ESCITALOPRAM [Concomitant]
  4. TIOTROPIUM BROMIDE [Concomitant]
  5. CLOPIDOGREL BISULFATE [Concomitant]
  6. MONTELUKAST [Concomitant]
  7. ISOSORBIDE MONONITRATE [Concomitant]
  8. LEVOTHYROXINE SODIUM [Concomitant]
  9. SIMVASTATIN [Concomitant]
  10. LANSOPRAZOLE [Concomitant]
  11. GABAPENTIN [Concomitant]
  12. ACETYLSALICYLIC ACID [Concomitant]

REACTIONS (1)
  - THROMBOSIS [None]
